FAERS Safety Report 13716948 (Version 1)
Quarter: 2017Q3

REPORT INFORMATION
  Report Type: Spontaneous
  Country: US (occurrence: US)
  Receive Date: 20170703
  Receipt Date: 20170703
  Transmission Date: 20171127
  Serious: Yes (Disabling)
  Sender: FDA-Public Use
  Company Number: None

PATIENT
  Age: 51 Year
  Sex: Female
  Weight: 103 kg

DRUGS (26)
  1. XANAX [Concomitant]
     Active Substance: ALPRAZOLAM
  2. AZELASTINE [Concomitant]
     Active Substance: AZELASTINE
  3. FLUTICASONE. [Concomitant]
     Active Substance: FLUTICASONE
  4. TOPIRAMATE. [Concomitant]
     Active Substance: TOPIRAMATE
  5. LIDOCAINE. [Concomitant]
     Active Substance: LIDOCAINE
  6. SOMA [Concomitant]
     Active Substance: CARISOPRODOL
  7. TOPROL XL [Concomitant]
     Active Substance: METOPROLOL SUCCINATE
  8. AMBIEN [Concomitant]
     Active Substance: ZOLPIDEM TARTRATE
  9. MULTIVIT WOMAN OVER 50 [Concomitant]
  10. CLARITIN [Concomitant]
     Active Substance: LORATADINE
  11. SAVELLA [Concomitant]
     Active Substance: MILNACIPRAN HYDROCHLORIDE
  12. DOCUSATE SODIUM W/LAXATIVE [Concomitant]
  13. FLUOCINOLONE OTIC [Concomitant]
  14. VITAMIN D [Concomitant]
     Active Substance: CHOLECALCIFEROL
  15. NEXIUM [Suspect]
     Active Substance: ESOMEPRAZOLE MAGNESIUM
     Indication: GASTROOESOPHAGEAL REFLUX DISEASE
     Dosage: ?          OTHER STRENGTH:MG;QUANTITY:60 CAPSULE(S);?
     Route: 048
  16. ALBUTEROL. [Concomitant]
     Active Substance: ALBUTEROL
  17. ESOMEPRAZOLE [Concomitant]
     Active Substance: ESOMEPRAZOLE
  18. HYDROXYZINE [Concomitant]
     Active Substance: HYDROXYZINE HYDROCHLORIDE
  19. SINGULAIR [Concomitant]
     Active Substance: MONTELUKAST SODIUM
  20. FOBEE [Concomitant]
  21. VERAPAMIL [Concomitant]
     Active Substance: VERAPAMIL HYDROCHLORIDE
  22. CO-Q10 [Concomitant]
  23. C [Concomitant]
  24. FISH OIL [Concomitant]
     Active Substance: FISH OIL
  25. KLORKON [Concomitant]
  26. MAXALT [Concomitant]
     Active Substance: RIZATRIPTAN BENZOATE

REACTIONS (1)
  - Renal impairment [None]

NARRATIVE: CASE EVENT DATE: 20010201
